FAERS Safety Report 7594471 (Version 3)
Quarter: 2014Q1

REPORT INFORMATION
  Report Type: Spontaneous
  Country: US (occurrence: US)
  Receive Date: 20100920
  Receipt Date: 20140108
  Transmission Date: 20141002
  Serious: Yes (Other)
  Sender: FDA-Public Use
  Company Number: US-BAYER-201033977NA

PATIENT
  Age: 16 Year
  Sex: Female
  Weight: 72.56 kg

DRUGS (8)
  1. YAZ [Suspect]
     Indication: PREMENSTRUAL DYSPHORIC DISORDER
     Dosage: UNK
     Dates: start: 200711, end: 200811
  2. ALBUTEROL [Concomitant]
     Indication: ASTHMA
     Dosage: UNK
     Dates: start: 2003, end: 2009
  3. LEXAPRO [Concomitant]
     Indication: DEPRESSION
     Dosage: UNK
     Dates: start: 2007, end: 2008
  4. TOPAMAX [Concomitant]
     Indication: MIGRAINE
     Dosage: UNK
  5. PROTORON [Concomitant]
     Indication: MIGRAINE
  6. SEROQUEL [Concomitant]
     Indication: BIPOLAR DISORDER
  7. SEROQUEL [Concomitant]
     Indication: INSOMNIA
  8. ZOLOFT [Concomitant]
     Indication: DEPRESSION

REACTIONS (6)
  - Gallbladder disorder [Unknown]
  - Abdominal pain [Unknown]
  - Vomiting [Unknown]
  - Bipolar disorder [None]
  - Depression [None]
  - Anxiety [None]
